FAERS Safety Report 10081507 (Version 3)
Quarter: 2014Q2

REPORT INFORMATION
  Report Type: Spontaneous
  Country: US (occurrence: US)
  Receive Date: 20140416
  Receipt Date: 20140416
  Transmission Date: 20141212
  Serious: No
  Sender: FDA-Public Use
  Company Number: US-ASTRAZENECA-2000AU02656

PATIENT
  Age: 72 Year
  Sex: Female
  Weight: 72.1 kg

DRUGS (9)
  1. PRILOSEC [Suspect]
     Indication: GASTROOESOPHAGEAL REFLUX DISEASE
     Route: 048
  2. PRILOSEC [Suspect]
     Indication: OESOPHAGEAL DISORDER
     Route: 048
  3. SYMBICORT [Suspect]
     Indication: ASTHMA
     Dosage: 160/4.5 TWO PUFFS BID
     Route: 055
  4. CRESTOR [Suspect]
     Indication: BLOOD CHOLESTEROL INCREASED
     Route: 048
     Dates: start: 2012
  5. ACCOLATE [Concomitant]
  6. FLOVENT [Concomitant]
  7. STEROID [Concomitant]
  8. PROVENTIL HFA [Concomitant]
     Indication: RESPIRATORY DISORDER
     Dosage: PRN
  9. PROVENTIL HFA [Concomitant]
     Indication: ASTHMA
     Dosage: PRN

REACTIONS (8)
  - Weight increased [Unknown]
  - Lip injury [Not Recovered/Not Resolved]
  - Pain [Unknown]
  - Bone pain [Unknown]
  - Diverticulitis [Not Recovered/Not Resolved]
  - Asthma [Unknown]
  - Malaise [Not Recovered/Not Resolved]
  - Injury associated with device [Not Recovered/Not Resolved]
